FAERS Safety Report 5465364-9 (Version None)
Quarter: 2007Q3

REPORT INFORMATION
  Report Type: 
  Country: None (occurrence: None)
  Receive Date: 20070920
  Receipt Date: 20070910
  Transmission Date: 20080115
  Serious: Yes (Other)
  Sender: FDA-Public Use
  Company Number: 237734K07USA

PATIENT
  Age: 47 Year
  Sex: Female

DRUGS (4)
  1. REBIF [Suspect]
     Indication: MULTIPLE SCLEROSIS
     Dosage: 44 MCG, 3 IN 1 WEEKS, SUBCUTANEOUS
     Route: 058
     Dates: start: 20060605
  2. PREMARIN [Concomitant]
  3. PROZAC [Concomitant]
  4. EFFEXOR [Concomitant]

REACTIONS (4)
  - CONDITION AGGRAVATED [None]
  - GALLBLADDER DISORDER [None]
  - HEPATIC STEATOSIS [None]
  - HYPERTENSION [None]
